FAERS Safety Report 4701077-6 (Version None)
Quarter: 2005Q2

REPORT INFORMATION
  Report Type: 
  Country: None (occurrence: None)
  Receive Date: 20050624
  Receipt Date: 20041116
  Transmission Date: 20051028
  Serious: Yes (Other)
  Sender: FDA-Public Use
  Company Number: 2004094389

PATIENT
  Age: 56 Year
  Sex: Female
  Weight: 70.3075 kg

DRUGS (1)
  1. CELEBREX [Suspect]
     Indication: OSTEOARTHRITIS
     Dosage: ORAL
     Route: 048
     Dates: start: 20021001, end: 20030101

REACTIONS (6)
  - ERYTHEMA [None]
  - FLUSHING [None]
  - PAIN [None]
  - RIB FRACTURE [None]
  - SPINAL FRACTURE [None]
  - WEIGHT INCREASED [None]
